FAERS Safety Report 8759567 (Version 2)
Quarter: 2012Q4

REPORT INFORMATION
  Report Type: 
  Country: AU (occurrence: AU)
  Receive Date: 20120829
  Receipt Date: 20120911
  Transmission Date: 20130627
  Serious: Yes (Other)
  Sender: FDA-Public Use
  Company Number: PHHY2012AU074364

PATIENT
  Age: 75 Year
  Sex: Female

DRUGS (5)
  1. TRAMADOL [Suspect]
  2. MOMETASONE [Concomitant]
  3. ERGOCALCIFEROL [Concomitant]
  4. AMLODIPINE [Concomitant]
  5. ESTRADIOL [Concomitant]

REACTIONS (3)
  - Atrial fibrillation [Recovered/Resolved]
  - Tachycardia [Recovered/Resolved]
  - Hypokalaemia [Recovered/Resolved]
